FAERS Safety Report 10886419 (Version 1)
Quarter: 2015Q1

REPORT INFORMATION
  Report Type: Spontaneous
  Country: US (occurrence: US)
  Receive Date: 20150304
  Receipt Date: 20150304
  Transmission Date: 20150721
  Serious: Yes (Other)
  Sender: FDA-Public Use
  Company Number: US-BAXTER-2015BAX011241

PATIENT
  Age: 59 Year
  Sex: Male

DRUGS (1)
  1. 0.9% SODIUM CHLORIDE [Suspect]
     Active Substance: SODIUM CHLORIDE
     Indication: BLADDER IRRIGATION
     Route: 066

REACTIONS (4)
  - Acute pulmonary oedema [Recovered/Resolved]
  - Acidosis hyperchloraemic [Recovered/Resolved]
  - Respiratory failure [Recovered/Resolved]
  - Transurethral resection syndrome [Recovered/Resolved]
